FAERS Safety Report 4291425-6 (Version None)
Quarter: 2004Q1

REPORT INFORMATION
  Report Type: 
  Country: None (occurrence: None)
  Receive Date: 20040211
  Receipt Date: 20040105
  Transmission Date: 20041129
  Serious: Yes (Hospitalization)
  Sender: FDA-Public Use
  Company Number: PHBS2004JP00499

PATIENT
  Age: 53 Year
  Sex: Male
  Weight: 71 kg

DRUGS (11)
  1. DIOVAN [Suspect]
     Indication: HYPERTENSION
     Dosage: 40 MG, QD
     Route: 048
     Dates: start: 20031224, end: 20031226
  2. DIOVAN [Suspect]
     Dates: start: 20030707, end: 20030714
  3. GASTER [Suspect]
     Indication: GASTRITIS
     Dosage: 10 MG, QD
     Route: 048
     Dates: start: 20031224, end: 20031226
  4. ASPIRIN [Suspect]
     Dosage: 100 MG, QD
     Route: 048
     Dates: start: 20031224, end: 20031226
  5. MUCOSTA [Concomitant]
     Indication: GASTRITIS
     Dosage: 300 MG/DAY
     Route: 048
     Dates: start: 20031224, end: 20031226
  6. ACECOL [Concomitant]
     Indication: HYPERTENSION
     Dosage: 2 MG, UNK
     Route: 048
     Dates: start: 20011001, end: 20031226
  7. DIART [Concomitant]
     Indication: OEDEMA PERIPHERAL
     Dosage: 30 MG, UNK
     Route: 048
     Dates: start: 20030703, end: 20031226
  8. KREMEZIN [Concomitant]
     Indication: RENAL FAILURE
     Dosage: 6 G, UNK
     Route: 048
     Dates: start: 20011001, end: 20031226
  9. KALIMATE [Concomitant]
     Indication: HYPERKALAEMIA
     Dosage: 15 G, UNK
     Route: 048
     Dates: start: 20030703, end: 20031226
  10. SORBITOL [Concomitant]
     Indication: CONSTIPATION
     Dosage: 15 G, UNK
     Route: 048
     Dates: start: 20030703, end: 20031226
  11. SLONNON [Concomitant]
     Indication: CEREBRAL INFARCTION
     Dosage: 3 DF, UNK
     Route: 042
     Dates: start: 20031218, end: 20031225

REACTIONS (5)
  - BLOOD CREATININE INCREASED [None]
  - CEREBRAL INFARCTION [None]
  - GASTRITIS [None]
  - HAEMODIALYSIS [None]
  - OLIGURIA [None]
